FAERS Safety Report 10726129 (Version 1)
Quarter: 2015Q1

REPORT INFORMATION
  Report Type: Spontaneous
  Country: FR (occurrence: None)
  Receive Date: 20150116
  Receipt Date: 20150116
  Transmission Date: 20150721
  Serious: Yes (Hospitalization, Other)
  Sender: FDA-Public Use
  Company Number: BD-2015-0001

PATIENT
  Age: 12 Year
  Sex: Female

DRUGS (2)
  1. MORPHINE SULFATE. [Suspect]
     Active Substance: MORPHINE SULFATE
     Indication: HAND FRACTURE
     Dates: start: 20130723
  2. MORPHINE SULFATE. [Suspect]
     Active Substance: MORPHINE SULFATE
     Indication: JOINT DISLOCATION
     Dates: start: 20130723

REACTIONS (2)
  - Abdominal pain upper [None]
  - Pancreatitis acute [None]

NARRATIVE: CASE EVENT DATE: 201307
